FAERS Safety Report 14230644 (Version 1)
Quarter: 2017Q4

REPORT INFORMATION
  Report Type: Spontaneous
  Country: US (occurrence: US)
  Receive Date: 20171128
  Receipt Date: 20171128
  Transmission Date: 20180321
  Serious: No
  Sender: FDA-Public Use
  Company Number: US-ELI_LILLY_AND_COMPANY-US201711009647

PATIENT
  Sex: Female

DRUGS (1)
  1. TRULICITY [Suspect]
     Active Substance: DULAGLUTIDE
     Indication: PRODUCT USED FOR UNKNOWN INDICATION
     Dosage: 0.75 MG, UNKNOWN
     Route: 065
     Dates: start: 201705

REACTIONS (5)
  - Early satiety [Unknown]
  - Amylase increased [Unknown]
  - Vomiting [Unknown]
  - Lipase increased [Unknown]
  - Nausea [Unknown]

NARRATIVE: CASE EVENT DATE: 20171009
